FAERS Safety Report 22048909 (Version 1)
Quarter: 2023Q1

REPORT INFORMATION
  Report Type: Other
  Country: CA (occurrence: CA)
  Receive Date: 20230301
  Receipt Date: 20230301
  Transmission Date: 20230417
  Serious: Yes (Life-Threatening, Hospitalization, Congenital Anomaly)
  Sender: FDA-Public Use
  Company Number: CA-PFIZER INC-202300082983

PATIENT

DRUGS (4)
  1. SPIRONOLACTONE [Suspect]
     Active Substance: SPIRONOLACTONE
     Indication: Hypertension
     Dosage: UNK
     Route: 064
  2. LASIX [Suspect]
     Active Substance: FUROSEMIDE
     Indication: Hypertension
     Route: 064
  3. LOSARTAN [Suspect]
     Active Substance: LOSARTAN
     Indication: Hypertension
     Dosage: UNK
     Route: 064
  4. PERINDOPRIL [Suspect]
     Active Substance: PERINDOPRIL
     Indication: Hypertension
     Dosage: UNK
     Route: 064

REACTIONS (11)
  - Maternal exposure during pregnancy [Not Recovered/Not Resolved]
  - Cleft palate [Not Recovered/Not Resolved]
  - Congenital musculoskeletal disorder of limbs [Not Recovered/Not Resolved]
  - Congenital musculoskeletal disorder of skull [Not Recovered/Not Resolved]
  - Congenital renal disorder [Not Recovered/Not Resolved]
  - Foetal disorder [Not Recovered/Not Resolved]
  - Hypocalvaria [Not Recovered/Not Resolved]
  - Kidney fibrosis [Not Recovered/Not Resolved]
  - Neonatal hypotension [Not Recovered/Not Resolved]
  - Neonatal respiratory failure [Not Recovered/Not Resolved]
  - Renal vessel congenital anomaly [Not Recovered/Not Resolved]
